FAERS Safety Report 13670374 (Version 1)
Quarter: 2017Q2

REPORT INFORMATION
  Report Type: Spontaneous
  Country: DE (occurrence: DE)
  Receive Date: 20170620
  Receipt Date: 20170620
  Transmission Date: 20170830
  Serious: Yes (Hospitalization)
  Sender: FDA-Public Use
  Company Number: DE-TEVA-779648GER

PATIENT
  Age: 45 Year
  Sex: Female

DRUGS (2)
  1. SERTRALINE [Interacting]
     Active Substance: SERTRALINE HYDROCHLORIDE
     Indication: ANXIETY
     Route: 048
     Dates: start: 2015
  2. MIRTAZAPIN-CT 30 MG SCHMELZTABLETTEN [Suspect]
     Active Substance: MIRTAZAPINE

REACTIONS (2)
  - Obsessive thoughts [Unknown]
  - Drug interaction [Unknown]
